FAERS Safety Report 20353389 (Version 3)
Quarter: 2022Q1

REPORT INFORMATION
  Report Type: Report from Study
  Country: US (occurrence: US)
  Receive Date: 20220119
  Receipt Date: 20220227
  Transmission Date: 20220424
  Serious: No
  Sender: FDA-Public Use
  Company Number: US-JNJFOC-20220130693

PATIENT
  Age: 66 Year
  Sex: Female
  Weight: 113.50 kg

DRUGS (2)
  1. STELARA [Suspect]
     Active Substance: USTEKINUMAB
     Indication: Colitis microscopic
     Route: 058
  2. STELARA [Suspect]
     Active Substance: USTEKINUMAB
     Route: 042
     Dates: start: 20211101

REACTIONS (5)
  - Diarrhoea [Not Recovered/Not Resolved]
  - Device defective [Unknown]
  - Product dose omission issue [Unknown]
  - Injection site nodule [Unknown]
  - Incorrect route of product administration [Unknown]

NARRATIVE: CASE EVENT DATE: 20211222
